FAERS Safety Report 7557028-2 (Version None)
Quarter: 2011Q2

REPORT INFORMATION
  Report Type: 
  Country: None (occurrence: None)
  Receive Date: 20110616
  Receipt Date: 20110616
  Transmission Date: 20111010
  Serious: Yes (Hospitalization)
  Sender: FDA-Public Use
  Company Number: None

PATIENT
  Age: 70 Year
  Sex: Female
  Weight: 113.3993 kg

DRUGS (1)
  1. LISINOPRIL [Suspect]

REACTIONS (5)
  - RESPIRATORY FAILURE [None]
  - SWOLLEN TONGUE [None]
  - DYSPNOEA [None]
  - ANGIOEDEMA [None]
  - DROOLING [None]
